FAERS Safety Report 8235131-1 (Version None)
Quarter: 2012Q1

REPORT INFORMATION
  Report Type: 
  Country: None (occurrence: None)
  Receive Date: 20120326
  Receipt Date: 20120319
  Transmission Date: 20120608
  Serious: Yes (Hospitalization)
  Sender: FDA-Public Use
  Company Number: FR-B.I. PHARMACEUTICALS,INC./RIDGEFIELD-2012-FF-00239FF

PATIENT
  Sex: Male
  Weight: 68 kg

DRUGS (3)
  1. TAMSULOSIN HCL [Suspect]
     Indication: BENIGN PROSTATIC HYPERPLASIA
     Dosage: 0.4 MG
     Route: 048
  2. AMLODIPINE [Suspect]
     Indication: HYPERTENSION
     Route: 048
  3. BCG INSTILLATION [Suspect]
     Indication: PAPILLOMA
     Route: 043
     Dates: start: 20100101, end: 20100101

REACTIONS (7)
  - PROSTATIC SPECIFIC ANTIGEN INCREASED [None]
  - GAMMA-GLUTAMYLTRANSFERASE INCREASED [None]
  - LIVER DISORDER [None]
  - URETHRAL ATROPHY [None]
  - URINARY TRACT INFECTION [None]
  - BLADDER POLYPECTOMY [None]
  - PAIN [None]
